FAERS Safety Report 25646838 (Version 1)
Quarter: 2025Q3

REPORT INFORMATION
  Report Type: Report from Study
  Country: TW (occurrence: TW)
  Receive Date: 20250805
  Receipt Date: 20250805
  Transmission Date: 20251021
  Serious: Yes (Hospitalization)
  Sender: JOHNSON AND JOHNSON
  Company Number: TW-JNJFOC-20250735621

PATIENT
  Sex: Male

DRUGS (1)
  1. DARZALEX [Suspect]
     Active Substance: DARATUMUMAB
     Indication: Plasma cell myeloma
     Route: 065
     Dates: start: 20250717

REACTIONS (6)
  - Drug hypersensitivity [Unknown]
  - Mental disorder [Unknown]
  - Diarrhoea [Unknown]
  - Hypotension [Unknown]
  - Pain [Unknown]
  - Somnolence [Unknown]
